FAERS Safety Report 11372374 (Version 1)
Quarter: 2015Q3

REPORT INFORMATION
  Report Type: Spontaneous
  Country: US (occurrence: US)
  Receive Date: 20150811
  Receipt Date: 20150811
  Transmission Date: 20151125
  Serious: No
  Sender: FDA-Public Use
  Company Number: US-ELI_LILLY_AND_COMPANY-US201205000592

PATIENT
  Sex: Male

DRUGS (3)
  1. AXIRON [Suspect]
     Active Substance: TESTOSTERONE
     Indication: BLOOD TESTOSTERONE DECREASED
     Dosage: UNK, QD, 3 PUMPS A DAY, UNDERARMS
     Route: 050
     Dates: start: 201203
  2. CIALIS [Concomitant]
     Active Substance: TADALAFIL
     Indication: ERECTILE DYSFUNCTION
     Dosage: 5 MG, QD
  3. AXIRON [Suspect]
     Active Substance: TESTOSTERONE
     Dosage: UNK, QD, 4 PUMPS A DAY
     Route: 050

REACTIONS (3)
  - Blood testosterone decreased [Unknown]
  - Application site pain [Not Recovered/Not Resolved]
  - Application site erythema [Unknown]
